FAERS Safety Report 5098344-6 (Version None)
Quarter: 2006Q3

REPORT INFORMATION
  Report Type: 
  Country: None (occurrence: None)
  Receive Date: 20060907
  Receipt Date: 20060831
  Transmission Date: 20061208
  Serious: Yes (Hospitalization, Other)
  Sender: FDA-Public Use
  Company Number: US-JNJFOC-20060803565

PATIENT
  Sex: Male
  Weight: 39.92 kg

DRUGS (6)
  1. REMICADE [Suspect]
     Dosage: 4 INFUSIONS SINCE FEB-06.
     Route: 042
  2. REMICADE [Suspect]
     Route: 042
  3. REMICADE [Suspect]
     Indication: COLITIS ULCERATIVE
     Dosage: 2 INFUSIONS ON UNSPECIFIED DATES
     Route: 042
  4. 6MP [Suspect]
  5. 6MP [Suspect]
     Indication: COLITIS ULCERATIVE
  6. ALLOPURINOL [Concomitant]
     Indication: COLITIS ULCERATIVE

REACTIONS (8)
  - ANAEMIA [None]
  - BALANCE DISORDER [None]
  - CLOSTRIDIAL INFECTION [None]
  - COLITIS ULCERATIVE [None]
  - DIZZINESS [None]
  - LOSS OF CONSCIOUSNESS [None]
  - PALLOR [None]
  - WHITE BLOOD CELL COUNT DECREASED [None]
